FAERS Safety Report 13352332 (Version 1)
Quarter: 2017Q1

REPORT INFORMATION
  Report Type: Spontaneous
  Country: US (occurrence: US)
  Receive Date: 20170320
  Receipt Date: 20170320
  Transmission Date: 20170429
  Serious: No
  Sender: FDA-Public Use
  Company Number: US-SA-2017SA013149

PATIENT
  Age: 77 Year
  Sex: Male

DRUGS (1)
  1. NASACORT ALLERGY 24HR [Suspect]
     Active Substance: TRIAMCINOLONE ACETONIDE
     Indication: HYPERSENSITIVITY
     Route: 065
     Dates: start: 20170119

REACTIONS (5)
  - Dyspnoea [Unknown]
  - Insomnia [Unknown]
  - Mouth breathing [Unknown]
  - Condition aggravated [Unknown]
  - Drug effect incomplete [Unknown]
